FAERS Safety Report 7962265-9 (Version None)
Quarter: 2011Q4

REPORT INFORMATION
  Report Type: 
  Country: None (occurrence: None)
  Receive Date: 20111207
  Receipt Date: 20111205
  Transmission Date: 20120403
  Serious: Yes (Death)
  Sender: FDA-Public Use
  Company Number: PHHY2011NL73164

PATIENT
  Sex: Male

DRUGS (5)
  1. ZOMETA [Suspect]
     Dosage: 4 MG/5ML, UNK
     Dates: start: 20110719
  2. DAGYNIL [Concomitant]
     Dosage: 1.25 MG X 1
  3. ZOMETA [Suspect]
     Dosage: 4 MG/5ML, UNK
     Dates: start: 20100917
  4. LHRH [Concomitant]
  5. ZOMETA [Suspect]
     Indication: PROSTATE CANCER
     Dosage: 4 MG/5ML, UNK
     Dates: start: 20100301

REACTIONS (2)
  - CARDIAC FAILURE [None]
  - RESPIRATORY FAILURE [None]
